FAERS Safety Report 15586904 (Version 1)
Quarter: 2018Q4

REPORT INFORMATION
  Report Type: Spontaneous
  Country: US (occurrence: US)
  Receive Date: 20181102
  Receipt Date: 20181102
  Transmission Date: 20190205
  Serious: No
  Sender: FDA-Public Use
  Company Number: None

PATIENT
  Age: 29 Year
  Sex: Female
  Weight: 73.03 kg

DRUGS (2)
  1. FOLIC ACID 1MG TABLET [Suspect]
     Active Substance: FOLIC ACID
     Indication: RHEUMATOID ARTHRITIS
     Route: 048
     Dates: start: 201809
  2. METHOTREXATE SODIUM (PF) 50MG [Suspect]
     Active Substance: METHOTREXATE SODIUM
     Indication: RHEUMATOID ARTHRITIS
     Dosage: INJECT 0.8ML (20MG) SUBCUTANEOUSLY EVERY WEEK AS DIRECTED (CHECK LABS MONTHLY AND NO ALCOHOL)
     Route: 058
     Dates: start: 201809

REACTIONS (1)
  - Headache [None]
